FAERS Safety Report 25556425 (Version 2)
Quarter: 2025Q3

REPORT INFORMATION
  Report Type: Report from Study
  Country: CA (occurrence: CA)
  Receive Date: 20250715
  Receipt Date: 20250721
  Transmission Date: 20251020
  Serious: Yes (Other)
  Sender: TAKEDA
  Company Number: CA-TAKEDA-2025TUS062834

PATIENT
  Sex: Male

DRUGS (4)
  1. HUMAN IMMUNOGLOBULIN G [Suspect]
     Active Substance: HUMAN IMMUNOGLOBULIN G
     Indication: Secondary immunodeficiency
     Dosage: 3 GRAM, 1/WEEK
     Dates: start: 20241002
  2. HUMAN IMMUNOGLOBULIN G [Suspect]
     Active Substance: HUMAN IMMUNOGLOBULIN G
     Indication: Waldenstrom^s macroglobulinaemia
     Dosage: 4 GRAM, 1/WEEK
  3. APIXABAN [Concomitant]
     Active Substance: APIXABAN
     Indication: Epistaxis
  4. IRON [Concomitant]
     Active Substance: IRON

REACTIONS (4)
  - Pneumonia [Recovered/Resolved]
  - Infection [Not Recovered/Not Resolved]
  - Blood immunoglobulin G decreased [Unknown]
  - Lymphadenopathy [Unknown]
